FAERS Safety Report 6142462-8 (Version None)
Quarter: 2009Q2

REPORT INFORMATION
  Report Type: 
  Country: None (occurrence: None)
  Receive Date: 20090403
  Receipt Date: 20090324
  Transmission Date: 20091009
  Serious: No
  Sender: FDA-Public Use
  Company Number: US-SOLVAY-00209001733

PATIENT
  Age: 47 Year
  Sex: Female
  Weight: 52.727 kg

DRUGS (2)
  1. ANDROGEL [Suspect]
     Indication: ACCIDENTAL EXPOSURE
     Dosage: DAILY DOSE: 5 GRAM(S)
     Route: 062
     Dates: start: 20081101, end: 20090301
  2. ANDROGEL [Suspect]
     Dosage: DAILY DOSE: 10 GRAM(S)
     Route: 062
     Dates: start: 20090301

REACTIONS (3)
  - HIRSUTISM [None]
  - MENSTRUATION IRREGULAR [None]
  - THERAPEUTIC RESPONSE UNEXPECTED [None]
